FAERS Safety Report 16575400 (Version 3)
Quarter: 2019Q3

REPORT INFORMATION
  Report Type: Spontaneous
  Country: MX (occurrence: MX)
  Receive Date: 20190716
  Receipt Date: 20190717
  Transmission Date: 20191004
  Serious: Yes (Other)
  Sender: FDA-Public Use
  Company Number: MX-MERZ NORTH AMERICA, INC.-19MRZ-00287

PATIENT
  Age: 19 Year
  Sex: Male

DRUGS (1)
  1. XEOMIN [Suspect]
     Active Substance: INCOBOTULINUMTOXINA
     Indication: DIPLOPIA
     Dosage: 10 UNITS
     Route: 030

REACTIONS (3)
  - Retinal detachment [Recovered/Resolved]
  - Off label use [Recovered/Resolved]
  - Product administration error [Recovered/Resolved]
